FAERS Safety Report 9034701 (Version 2)
Quarter: 2013Q1

REPORT INFORMATION
  Report Type: Report from Study
  Country: DE (occurrence: DE)
  Receive Date: 20130128
  Receipt Date: 20130205
  Transmission Date: 20140127
  Serious: Yes (Hospitalization)
  Sender: FDA-Public Use
  Company Number: DE-GLAXOSMITHKLINE-B0860170A

PATIENT
  Age: 68 Year
  Sex: Male
  Weight: 95 kg

DRUGS (14)
  1. FLUTICASONE FUROATE [Suspect]
     Indication: CHRONIC OBSTRUCTIVE PULMONARY DISEASE
     Dates: start: 20120830
  2. ASS [Concomitant]
     Indication: CORONARY ARTERY DISEASE
     Dosage: 300MG PER DAY
     Route: 048
     Dates: start: 2008
  3. UNKNOWN DRUG [Concomitant]
     Indication: HYPERCHOLESTEROLAEMIA
     Dosage: 20MG PER DAY
     Route: 048
     Dates: start: 1997
  4. GABAPENTIN [Concomitant]
     Indication: CONVULSION PROPHYLAXIS
     Route: 048
     Dates: start: 1997
  5. LEVEMIR [Concomitant]
     Indication: DIABETES MELLITUS
     Dosage: 55IU PER DAY
     Route: 058
  6. NOVORAPID [Concomitant]
     Indication: DIABETES MELLITUS
     Route: 058
  7. ATROVENT [Concomitant]
     Indication: CHRONIC OBSTRUCTIVE PULMONARY DISEASE
     Route: 048
     Dates: start: 20120823
  8. TORASEMID [Concomitant]
     Indication: DIURETIC THERAPY
     Dosage: 20MG PER DAY
     Route: 048
     Dates: start: 20121024
  9. ATACAND [Concomitant]
     Indication: HYPERTENSION
     Dosage: 16MG TWICE PER DAY
     Route: 048
     Dates: start: 2008
  10. CARVEDILOL [Concomitant]
     Indication: HYPERTENSION
     Dosage: 25MG TWICE PER DAY
     Route: 048
     Dates: start: 2008
  11. AMLODIPINE BESILATE [Concomitant]
     Indication: HYPERTENSION
     Dosage: 10MG TWICE PER DAY
     Route: 048
     Dates: start: 2007
  12. PENTALONG [Concomitant]
     Indication: ANGINA PECTORIS
     Dosage: 50MG TWICE PER DAY
     Route: 048
     Dates: start: 2000
  13. THYROXIN [Concomitant]
     Indication: HYPOTHYROIDISM
     Dosage: 125MG PER DAY
     Route: 048
  14. OMEPRAZOL [Concomitant]
     Indication: PROPHYLAXIS AGAINST GASTROINTESTINAL ULCER
     Dosage: 20MG PER DAY
     Route: 048
     Dates: start: 2008

REACTIONS (2)
  - Dyspnoea [Recovering/Resolving]
  - Chest pain [Recovered/Resolved]
